FAERS Safety Report 4664915-1 (Version None)
Quarter: 2005Q2

REPORT INFORMATION
  Report Type: 
  Country: None (occurrence: None)
  Receive Date: 20050517
  Receipt Date: 20050509
  Transmission Date: 20051028
  Serious: Yes (Hospitalization)
  Sender: FDA-Public Use
  Company Number: SEWYE658311MAY05

PATIENT
  Age: 53 Year
  Sex: Male

DRUGS (3)
  1. RAPAMUNE [Suspect]
     Indication: IMMUNOSUPPRESSION
     Dosage: 5 MG 1X PER 1D
     Dates: start: 20050208
  2. METHYLPRENISOLONE [Concomitant]
  3. ATG           (ANTILYMPHOCYTE IMMUNOGLOBULIN (HORSE)) [Concomitant]

REACTIONS (1)
  - TRANSPLANT REJECTION [None]
